FAERS Safety Report 16777704 (Version 1)
Quarter: 2019Q3

REPORT INFORMATION
  Report Type: Spontaneous
  Country: CL (occurrence: CL)
  Receive Date: 20190905
  Receipt Date: 20190905
  Transmission Date: 20191005
  Serious: Yes (Other)
  Sender: FDA-Public Use
  Company Number: CL-009507513-1909CHL000471

PATIENT
  Sex: Female

DRUGS (1)
  1. IMPLANON [Suspect]
     Active Substance: ETONOGESTREL
     Route: 059

REACTIONS (2)
  - Pregnancy with implant contraceptive [Unknown]
  - Unintended pregnancy [Unknown]
